FAERS Safety Report 6413281-X (Version None)
Quarter: 2009Q4

REPORT INFORMATION
  Report Type: 
  Country: None (occurrence: None)
  Receive Date: 20091022
  Receipt Date: 20091022
  Transmission Date: 20100525
  Serious: Yes (Life-Threatening, Hospitalization)
  Sender: FDA-Public Use
  Company Number: None

PATIENT
  Sex: Female

DRUGS (1)
  1. PREMARIN [Suspect]
     Dosage: TK 1 DAILY PO
     Route: 048
     Dates: start: 20020701, end: 20030601

REACTIONS (10)
  - AMNESIA [None]
  - BODY TEMPERATURE DECREASED [None]
  - FAECAL INCONTINENCE [None]
  - HYPOAESTHESIA [None]
  - MYOCARDIAL INFARCTION [None]
  - PARAESTHESIA [None]
  - RESPIRATORY ARREST [None]
  - THROMBOSIS [None]
  - URINARY INCONTINENCE [None]
  - VASODILATATION [None]
